FAERS Safety Report 8429584-3 (Version None)
Quarter: 2012Q2

REPORT INFORMATION
  Report Type: 
  Country: None (occurrence: None)
  Receive Date: 20120323
  Receipt Date: 20110421
  Transmission Date: 20120825
  Serious: Yes (Death, Hospitalization)
  Sender: FDA-Public Use
  Company Number: 163-21880-11043031

PATIENT
  Age: 79 Year
  Sex: Female

DRUGS (5)
  1. PROAIR HFA (SALBUTAMOL SULFATE) [Concomitant]
  2. PROCHLORPERAZINE MALEATE [Concomitant]
  3. VELCADE [Concomitant]
  4. ZYPREXA [Concomitant]
  5. REVLIMID [Suspect]
     Indication: MULTIPLE MYELOMA
     Dosage: 15 MG, 1 IN 1 D, PO
     Route: 048
     Dates: start: 20090901

REACTIONS (4)
  - PNEUMONIA [None]
  - HEPATIC ENZYME INCREASED [None]
  - DEHYDRATION [None]
  - DIARRHOEA [None]
